APPROVED DRUG PRODUCT: HYTRIN
Active Ingredient: TERAZOSIN HYDROCHLORIDE
Strength: EQ 2MG BASE **Federal Register determination that product was not discontinued or withdrawn for safety or effectiveness reasons**
Dosage Form/Route: CAPSULE;ORAL
Application: N020347 | Product #002
Applicant: ABBOTT LABORATORIES PHARMACEUTICAL PRODUCTS DIV
Approved: Dec 14, 1994 | RLD: Yes | RS: No | Type: DISCN